FAERS Safety Report 7085162-2 (Version None)
Quarter: 2010Q4

REPORT INFORMATION
  Report Type: 
  Country: None (occurrence: None)
  Receive Date: 20101028
  Receipt Date: 20101015
  Transmission Date: 20110411
  Serious: Yes (Life-Threatening, Hospitalization)
  Sender: FDA-Public Use
  Company Number: WAES 1003USA00477

PATIENT
  Age: 17 Year
  Sex: Female
  Weight: 69.8539 kg

DRUGS (7)
  1. ISENTRESS [Suspect]
     Indication: HIV INFECTION
     Dosage: 400 MG/BID/PO ; 400 MG/BID/PO
     Route: 048
     Dates: start: 20080208, end: 20090114
  2. ISENTRESS [Suspect]
     Indication: HIV INFECTION
     Dosage: 400 MG/BID/PO ; 400 MG/BID/PO
     Route: 048
     Dates: end: 20100727
  3. VANCOMYCIN [Suspect]
     Indication: PYREXIA
     Dosage: Q8H/IV
     Route: 042
     Dates: end: 20100512
  4. CEFTAZIDIME [Suspect]
     Indication: PNEUMONIA
     Dosage: Q8H/IV
     Route: 042
     Dates: end: 20100512
  5. VALTREX [Suspect]
     Indication: PROPHYLAXIS
     Dosage: BID/PO
     Route: 048
     Dates: end: 20100512
  6. ENALAPRIL MALEATE [Suspect]
     Indication: CARDIOMYOPATHY
     Dosage: BID/PO
     Route: 048
     Dates: end: 20100512
  7. PENTAMIDINE ISATHIONATE [Concomitant]

REACTIONS (26)
  - ALOPECIA [None]
  - ANAEMIA [None]
  - BODY TEMPERATURE INCREASED [None]
  - CONJUNCTIVAL HYPERAEMIA [None]
  - COUGH [None]
  - DEAFNESS UNILATERAL [None]
  - DEHYDRATION [None]
  - DEPRESSION [None]
  - DIARRHOEA [None]
  - EAR INFECTION [None]
  - ELECTROCARDIOGRAM QT PROLONGED [None]
  - ELECTROLYTE IMBALANCE [None]
  - HEPATIC STEATOSIS [None]
  - HERPES ZOSTER [None]
  - HYPOKALAEMIA [None]
  - HYPONATRAEMIA [None]
  - METABOLIC ACIDOSIS [None]
  - NYSTAGMUS [None]
  - PNEUMONIA [None]
  - RASH ERYTHEMATOUS [None]
  - RASH MACULO-PAPULAR [None]
  - RASH PRURITIC [None]
  - RENAL FAILURE [None]
  - TACHYCARDIA [None]
  - TACHYPNOEA [None]
  - TYPE 2 DIABETES MELLITUS [None]
